FAERS Safety Report 23611458 (Version 3)
Quarter: 2024Q1

REPORT INFORMATION
  Report Type: Report from Study
  Country: ES (occurrence: ES)
  Receive Date: 20240308
  Receipt Date: 20240325
  Transmission Date: 20240410
  Serious: Yes (Hospitalization, Other)
  Sender: FDA-Public Use
  Company Number: ES-BAXTER-2024BAX014133

PATIENT
  Age: 67 Year
  Sex: Female
  Weight: 69.1 kg

DRUGS (25)
  1. IFOSFAMIDE [Suspect]
     Active Substance: IFOSFAMIDE
     Indication: Diffuse large B-cell lymphoma stage III
     Dosage: 5 MG/M2, CYCLE 1, DOSAGE FORM: INFUSION, AS A PART OF R-ICE REGIMEN
     Route: 042
     Dates: start: 20240206, end: 20240207
  2. CYCLOPHOSPHAMIDE [Suspect]
     Active Substance: CYCLOPHOSPHAMIDE
     Indication: Diffuse large B-cell lymphoma stage III
     Dosage: UNK
     Route: 065
     Dates: start: 20230301, end: 20230616
  3. DOXORUBICIN [Suspect]
     Active Substance: DOXORUBICIN
     Indication: Diffuse large B-cell lymphoma stage III
     Dosage: UNK
     Route: 065
     Dates: start: 20230301, end: 20230616
  4. EPCORITAMAB [Suspect]
     Active Substance: EPCORITAMAB
     Indication: Diffuse large B-cell lymphoma stage III
     Dosage: UNK, CYCLE 1, PRIOR TO THE EVENT ONSET
     Route: 058
     Dates: start: 20240207, end: 20240207
  5. ETOPOSIDE [Suspect]
     Active Substance: ETOPOSIDE
     Indication: Diffuse large B-cell lymphoma stage III
     Dosage: 100 MG/M2, CYCLE 1, AS A PART OF R-ICE REGIMEN
     Route: 042
     Dates: start: 20240205, end: 20240207
  6. CARBOPLATIN [Suspect]
     Active Substance: CARBOPLATIN
     Indication: Diffuse large B-cell lymphoma stage III
     Dosage: 5 AUC CYCLE 1, AS A PART OF R-ICE REGIMEN
     Route: 042
     Dates: start: 20240206, end: 20240206
  7. RITUXIMAB [Suspect]
     Active Substance: RITUXIMAB
     Indication: Diffuse large B-cell lymphoma stage III
     Dosage: 375 MG/M2, CYCLE 1, AS A PART OF R-ICE REGIMEN
     Route: 042
     Dates: start: 20240205, end: 20240205
  8. DEXCHLORPHENIRAMINE [Concomitant]
     Active Substance: DEXCHLORPHENIRAMINE
     Indication: Premedication
     Dosage: UNK
     Route: 042
     Dates: start: 20240205, end: 20240205
  9. DEXCHLORPHENIRAMINE [Concomitant]
     Active Substance: DEXCHLORPHENIRAMINE
     Dosage: 5 MG
     Route: 042
     Dates: start: 20240207, end: 20240207
  10. ACETAMINOPHEN [Concomitant]
     Active Substance: ACETAMINOPHEN
     Indication: Premedication
     Dosage: UNK, START DATE: DEC-2023, ONGOING
     Route: 065
  11. ACETAMINOPHEN [Concomitant]
     Active Substance: ACETAMINOPHEN
     Dosage: 1000 MG
     Route: 042
     Dates: start: 20240207, end: 20240207
  12. DEXAMETHASONE [Concomitant]
     Active Substance: DEXAMETHASONE
     Indication: Prophylaxis
     Dosage: 12 MG, ONCE
     Route: 042
     Dates: start: 20240206, end: 20240206
  13. ACYCLOVIR [Concomitant]
     Active Substance: ACYCLOVIR
     Dosage: UNK, START DATE: 2023, ONGOING
     Route: 065
  14. APIXABAN [Concomitant]
     Active Substance: APIXABAN
     Dosage: UNK, START DATE: SEP-2023, ONGOING
     Route: 065
  15. Artificial tears [Concomitant]
     Dosage: UNK, START DATE: 2023, ONGOING
     Route: 065
  16. HUMAN SERUM, NORMAL [Concomitant]
     Active Substance: HUMAN SERUM, NORMAL
     Dosage: UNK, START DATE: 2023, ONGOING
     Route: 065
  17. ERGOCALCIFEROL [Concomitant]
     Active Substance: ERGOCALCIFEROL
     Dosage: UNK, START DATE: 2017, ONGOING
     Route: 065
  18. VITAMIN D NOS [Concomitant]
     Active Substance: VITAMIN D NOS
     Dosage: UNK, START DATE: 2011, ONGOING
     Route: 065
  19. CALCIUM [Concomitant]
     Active Substance: CALCIUM
     Dosage: UNK, START DATE: 2011, ONGOING
     Route: 065
  20. LORAZEPAM [Concomitant]
     Active Substance: LORAZEPAM
     Dosage: UNK, START DATE: JAN-2023, ONGOING
     Route: 065
  21. OMEPRAZOLE [Concomitant]
     Active Substance: OMEPRAZOLE
     Dosage: UNK, START DATE: 2023, ONGOING
     Route: 065
  22. PREGABALIN [Concomitant]
     Active Substance: PREGABALIN
     Dosage: UNK, START DATE: 2023, ONGOING
     Route: 065
  23. SULFAMETHOXAZOLE [Concomitant]
     Active Substance: SULFAMETHOXAZOLE
     Dosage: UNK, START DATE: 2023, ONGOING
     Route: 065
  24. TRIMETHOPRIM [Concomitant]
     Active Substance: TRIMETHOPRIM
     Dosage: UNK, START DATE: 2023, ONGOING
     Route: 065
  25. TRAMADOL [Concomitant]
     Active Substance: TRAMADOL\TRAMADOL HYDROCHLORIDE
     Dosage: UNK, START DATE: JAN-2024, ONGOING
     Route: 065

REACTIONS (1)
  - Febrile neutropenia [Recovered/Resolved]

NARRATIVE: CASE EVENT DATE: 20240217
